FAERS Safety Report 14023217 (Version 1)
Quarter: 2017Q3

REPORT INFORMATION
  Report Type: Spontaneous
  Country: DE (occurrence: DE)
  Receive Date: 20170929
  Receipt Date: 20170929
  Transmission Date: 20171128
  Serious: Yes (Life-Threatening, Other)
  Sender: FDA-Public Use
  Company Number: DE-009507513-1709DEU013616

PATIENT
  Sex: Male

DRUGS (1)
  1. KEYTRUDA [Suspect]
     Active Substance: PEMBROLIZUMAB
     Indication: MALIGNANT MELANOMA
     Dosage: 2 MG/KG, UNK

REACTIONS (4)
  - Sepsis [Unknown]
  - Leukopenia [Unknown]
  - Meningitis herpes [Unknown]
  - Human herpesvirus 6 infection [Unknown]
